FAERS Safety Report 12905711 (Version 1)
Quarter: 2016Q4

REPORT INFORMATION
  Report Type: Report from Study
  Country: IT (occurrence: IT)
  Receive Date: 20161103
  Receipt Date: 20161103
  Transmission Date: 20170207
  Serious: Yes (Death)
  Sender: FDA-Public Use
  Company Number: IT-CIPLA LTD.-2016IT20232

PATIENT

DRUGS (2)
  1. CARBOPLATIN. [Suspect]
     Active Substance: CARBOPLATIN
     Indication: OVARIAN EPITHELIAL CANCER
     Dosage: AREA UNDER CURVE (AUC 2), IN 1-H INFUSION ON DAYS 1, 8, 15 EVERY 28 DAYS
     Route: 042
  2. PACLITAXEL. [Suspect]
     Active Substance: PACLITAXEL
     Indication: OVARIAN EPITHELIAL CANCER
     Dosage: 60 MG/M2, IN 1-H INFUSION ON DAYS 1, 8, 15 EVERY 28 DAYS
     Route: 042

REACTIONS (1)
  - Procedural haemorrhage [Fatal]
